FAERS Safety Report 5710124-4 (Version None)
Quarter: 2008Q2

REPORT INFORMATION
  Report Type: 
  Country: None (occurrence: None)
  Receive Date: 20080418
  Receipt Date: 20071126
  Transmission Date: 20081010
  Serious: No
  Sender: FDA-Public Use
  Company Number: US-ASTRAZENECA-2007UW27084

PATIENT
  Age: 58 Year
  Sex: Female
  Weight: 108.9 kg

DRUGS (6)
  1. TOPROL-XL [Suspect]
     Indication: HYPERTENSION
     Route: 048
     Dates: start: 20030101
  2. CRESTOR [Concomitant]
  3. HYDROCHLOROTHIAZIDE [Concomitant]
  4. VICODIN [Concomitant]
     Route: 048
  5. VALIUM [Concomitant]
  6. XANAX [Concomitant]

REACTIONS (1)
  - WEIGHT INCREASED [None]
